FAERS Safety Report 9387592 (Version 3)
Quarter: 2013Q4

REPORT INFORMATION
  Report Type: Spontaneous
  Country: US (occurrence: US)
  Receive Date: 20130708
  Receipt Date: 20131016
  Transmission Date: 20140711
  Serious: No
  Sender: FDA-Public Use
  Company Number: US-009507513-1307USA003387

PATIENT
  Age: 8 Year
  Sex: 0

DRUGS (1)
  1. MIRALAX [Suspect]
     Indication: PRODUCT USED FOR UNKNOWN INDICATION
     Dosage: UNK, UNKNOWN
     Route: 048

REACTIONS (3)
  - Drug administered to patient of inappropriate age [Unknown]
  - Off label use [Unknown]
  - Expired drug administered [Unknown]
